FAERS Safety Report 19626421 (Version 2)
Quarter: 2021Q3

REPORT INFORMATION
  Report Type: Report from Study
  Country: US (occurrence: US)
  Receive Date: 20210729
  Receipt Date: 20210814
  Transmission Date: 20211014
  Serious: Yes (Other)
  Sender: FDA-Public Use
  Company Number: US-ADVANZ PHARMA-202107005245

PATIENT

DRUGS (3)
  1. HYDROXYCHLOROQUINE [Suspect]
     Active Substance: HYDROXYCHLOROQUINE
     Indication: PRODUCT USED FOR UNKNOWN INDICATION
     Dosage: UNK
     Route: 065
  2. DUPIXENT [Suspect]
     Active Substance: DUPILUMAB
     Indication: DERMATITIS ATOPIC
     Dosage: 600 MG, SINGLE (1X (LOADING DOSE)
     Route: 058
     Dates: start: 20210408, end: 20210408
  3. DUPIXENT [Suspect]
     Active Substance: DUPILUMAB
     Dosage: 300 MG EVERY OTHER WEEK (RECEIVED 8 DOSES OF DUPILUMAB IN TOTAL)
     Route: 058
     Dates: start: 2021, end: 2021

REACTIONS (4)
  - Multiple allergies [Unknown]
  - Dermatitis contact [Unknown]
  - Lupus-like syndrome [Unknown]
  - Rash pruritic [Unknown]

NARRATIVE: CASE EVENT DATE: 2021
